FAERS Safety Report 16716025 (Version 1)
Quarter: 2019Q3

REPORT INFORMATION
  Report Type: Other
  Country: CA (occurrence: CA)
  Receive Date: 20190819
  Receipt Date: 20190819
  Transmission Date: 20191005
  Serious: Yes (Other)
  Sender: FDA-Public Use
  Company Number: CA-ASPEN-GLO2019CA008227

PATIENT
  Sex: Female

DRUGS (13)
  1. HYDROMORPHONE HYDROCHLORIDE. [Suspect]
     Active Substance: HYDROMORPHONE HYDROCHLORIDE
     Indication: ABDOMINAL PAIN
     Dosage: UNK
     Route: 048
  2. PROCTODAN-HC [Suspect]
     Active Substance: HYDROCORTISONE\PRAMOXINE\ZINC SULFATE
     Indication: PRODUCT USED FOR UNKNOWN INDICATION
     Route: 054
  3. DESOGESTREL, ETHINYLESTRADIOL [Suspect]
     Active Substance: DESOGESTREL
     Indication: CONTRACEPTION
     Dosage: UNK
     Route: 065
  4. DILAUDID [Suspect]
     Active Substance: HYDROMORPHONE HYDROCHLORIDE
     Indication: PRODUCT USED FOR UNKNOWN INDICATION
     Dosage: 2 MG, 3 DOSE DAILY
     Route: 048
  5. ERYTHROMYCIN. [Suspect]
     Active Substance: ERYTHROMYCIN
     Indication: PRODUCT USED FOR UNKNOWN INDICATION
     Route: 065
  6. INFLIXIMAB [Suspect]
     Active Substance: INFLIXIMAB
     Indication: COLITIS ULCERATIVE
     Dosage: 300 MG
     Route: 042
  7. INFLIXIMAB [Suspect]
     Active Substance: INFLIXIMAB
     Dosage: 600 MG
     Route: 042
  8. METRONIDAZOLE. [Suspect]
     Active Substance: METRONIDAZOLE
     Indication: PRODUCT USED FOR UNKNOWN INDICATION
     Dosage: 500 MG, 1 DOSE 12 HOURS
     Route: 065
  9. HYDROCORTISONE. [Suspect]
     Active Substance: HYDROCORTISONE
     Indication: PRODUCT USED FOR UNKNOWN INDICATION
     Dosage: 100 MG
     Route: 054
  10. HYDROMORPHONE HYDROCHLORIDE. [Suspect]
     Active Substance: HYDROMORPHONE HYDROCHLORIDE
     Dosage: UNK
     Route: 058
  11. PREDNISONE. [Suspect]
     Active Substance: PREDNISONE
     Indication: PRODUCT USED FOR UNKNOWN INDICATION
     Dosage: 15 MG
     Route: 048
  12. INFLIXIMAB [Suspect]
     Active Substance: INFLIXIMAB
     Dosage: 600 MG
     Route: 042
  13. METHYLPREDNISOLONE. [Suspect]
     Active Substance: METHYLPREDNISOLONE
     Indication: PRODUCT USED FOR UNKNOWN INDICATION
     Dosage: UNK
     Route: 042

REACTIONS (10)
  - Haematochezia [Unknown]
  - Constipation [Unknown]
  - Mucous stools [Unknown]
  - Visual impairment [Unknown]
  - Nausea [Unknown]
  - Abdominal distension [Unknown]
  - Abdominal pain [Unknown]
  - Blindness [Unknown]
  - Vomiting [Unknown]
  - Pyrexia [Unknown]
